FAERS Safety Report 4565287-3 (Version None)
Quarter: 2005Q1

REPORT INFORMATION
  Report Type: 
  Country: None (occurrence: None)
  Receive Date: 20050131
  Receipt Date: 20040920
  Transmission Date: 20050727
  Serious: Yes (Hospitalization, Disabling)
  Sender: FDA-Public Use
  Company Number: US-MERCK-0409USA01603

PATIENT
  Age: 48 Year
  Sex: Male

DRUGS (7)
  1. ZOCOR [Suspect]
     Indication: BLOOD CHOLESTEROL INCREASED
     Route: 048
     Dates: end: 20031211
  2. CELEBREX [Concomitant]
     Route: 065
     Dates: end: 20031211
  3. VIAGRA [Concomitant]
     Route: 065
  4. LASIX [Concomitant]
     Route: 065
  5. NAPROSYN [Concomitant]
     Route: 065
  6. VICODIN [Concomitant]
     Route: 065
  7. ZETIA [Concomitant]
     Route: 048

REACTIONS (15)
  - ARTHRALGIA [None]
  - ASTHENIA [None]
  - BLOOD CREATINE PHOSPHOKINASE INCREASED [None]
  - CARDIAC DISORDER [None]
  - CARDIAC FAILURE CONGESTIVE [None]
  - CARPAL TUNNEL SYNDROME [None]
  - CUBITAL TUNNEL SYNDROME [None]
  - DEVICE INEFFECTIVE [None]
  - FATIGUE [None]
  - MUSCLE SPASMS [None]
  - MUSCULOSKELETAL STIFFNESS [None]
  - MYALGIA [None]
  - OSTEOARTHRITIS [None]
  - PAIN IN EXTREMITY [None]
  - ROAD TRAFFIC ACCIDENT [None]
